FAERS Safety Report 23966644 (Version 1)
Quarter: 2024Q2

REPORT INFORMATION
  Report Type: Spontaneous
  Country: US (occurrence: US)
  Receive Date: 20240612
  Receipt Date: 20240612
  Transmission Date: 20240716
  Serious: No
  Sender: FDA-Public Use
  Company Number: US-ANIPHARMA-2024-US-001652

PATIENT
  Age: 78 Year
  Sex: Female
  Weight: 77.11 kg

DRUGS (7)
  1. OXYCODONE [Suspect]
     Active Substance: OXYCODONE\OXYCODONE HYDROCHLORIDE
     Indication: Product used for unknown indication
     Dosage: ONE CAPSULE EVERY 6 HOURS
     Route: 048
     Dates: start: 20231223, end: 20240110
  2. NIFEDIPINE [Concomitant]
     Active Substance: NIFEDIPINE
  3. ATORVASTATIN [Concomitant]
     Active Substance: ATORVASTATIN
  4. ANASTROZOLE [Concomitant]
     Active Substance: ANASTROZOLE
  5. VITAMINS [Concomitant]
     Active Substance: VITAMINS
  6. BUPROPION [Concomitant]
     Active Substance: BUPROPION
  7. ASPIRIN [Concomitant]
     Active Substance: ASPIRIN

REACTIONS (3)
  - Nausea [Not Recovered/Not Resolved]
  - Dizziness [Not Recovered/Not Resolved]
  - Feeling abnormal [Not Recovered/Not Resolved]

NARRATIVE: CASE EVENT DATE: 20231223
